FAERS Safety Report 7437142-2 (Version None)
Quarter: 2011Q2

REPORT INFORMATION
  Report Type: 
  Country: None (occurrence: None)
  Receive Date: 20110426
  Receipt Date: 20110421
  Transmission Date: 20111010
  Serious: Yes (Other)
  Sender: FDA-Public Use
  Company Number: CN-ABBOTT-11P-035-0711969-00

PATIENT
  Age: 9 Year
  Sex: Male

DRUGS (6)
  1. DEPAKENE [Suspect]
     Route: 048
     Dates: start: 20110225
  2. DEPAKENE [Suspect]
     Route: 048
  3. PIRACETAM [Concomitant]
     Indication: PRODUCT USED FOR UNKNOWN INDICATION
     Dates: start: 20100301
  4. FOLIC ACID [Concomitant]
     Indication: PRODUCT USED FOR UNKNOWN INDICATION
     Dates: start: 20100301
  5. DEPAKENE [Suspect]
     Indication: EPILEPSY
     Route: 048
     Dates: start: 20100301, end: 20110224
  6. INOSINE [Concomitant]
     Indication: PRODUCT USED FOR UNKNOWN INDICATION
     Dates: start: 20100301

REACTIONS (5)
  - EPILEPSY [None]
  - SUICIDAL IDEATION [None]
  - DRUG LEVEL DECREASED [None]
  - HEADACHE [None]
  - TREMOR [None]
